FAERS Safety Report 21699481 (Version 1)
Quarter: 2022Q4

REPORT INFORMATION
  Report Type: Report from Study
  Country: US (occurrence: US)
  Receive Date: 20221208
  Receipt Date: 20221208
  Transmission Date: 20230112
  Serious: Yes (Other)
  Sender: FDA-Public Use
  Company Number: US-JNJFOC-20221208525

PATIENT
  Age: 47 Year
  Sex: Female

DRUGS (2)
  1. SPRAVATO [Suspect]
     Active Substance: ESKETAMINE
     Indication: Major depression
     Dosage: ^56 MG, 3 TOTAL DOSES^
     Dates: start: 20221108, end: 20221122
  2. SPRAVATO [Suspect]
     Active Substance: ESKETAMINE
     Indication: Depression
     Dosage: RECENT DOSE ON 02-DEC-2022?^84 MG, 2 TOTAL DOSES^
     Dates: start: 20221129

REACTIONS (2)
  - Bladder disorder [Not Recovered/Not Resolved]
  - Micturition urgency [Not Recovered/Not Resolved]

NARRATIVE: CASE EVENT DATE: 20221118
